FAERS Safety Report 13218171 (Version 1)
Quarter: 2017Q1

REPORT INFORMATION
  Report Type: Other
  Country: US (occurrence: US)
  Receive Date: 20170210
  Receipt Date: 20170210
  Transmission Date: 20170428
  Serious: No
  Sender: FDA-Public Use
  Company Number: US-ACORDA-ACO_126080_2016

PATIENT
  Sex: Male
  Weight: 81.63 kg

DRUGS (2)
  1. GLATOPA [Concomitant]
     Active Substance: GLATIRAMER ACETATE
     Indication: PRODUCT USED FOR UNKNOWN INDICATION
     Dosage: UNK
     Route: 065
  2. AMPYRA [Suspect]
     Active Substance: DALFAMPRIDINE
     Indication: GAIT DISTURBANCE
     Dosage: 10 MG, BID
     Route: 048
     Dates: start: 20160604

REACTIONS (4)
  - Condition aggravated [Recovering/Resolving]
  - Drug ineffective [Not Recovered/Not Resolved]
  - Balance disorder [Recovered/Resolved]
  - Gait disturbance [Recovering/Resolving]
